FAERS Safety Report 8138500-3 (Version None)
Quarter: 2012Q1

REPORT INFORMATION
  Report Type: 
  Country: None (occurrence: None)
  Receive Date: 20120215
  Receipt Date: 20120130
  Transmission Date: 20120608
  Serious: Yes (Other)
  Sender: FDA-Public Use
  Company Number: RO-ROCHE-775425

PATIENT
  Sex: Male

DRUGS (9)
  1. PEGINTERFERON ALFA-2A [Suspect]
     Indication: HEPATITIS C
     Route: 065
     Dates: start: 20100728, end: 20110330
  2. ALUMINUM HYDROXIDE AND MAGNESIUM TRISILICATE [Concomitant]
  3. COPEGUS [Suspect]
     Route: 065
  4. COPEGUS [Suspect]
     Indication: HEPATITIS C
     Route: 065
     Dates: start: 20100728, end: 20100810
  5. COPEGUS [Suspect]
     Dosage: REDUCED DOSAGE
     Route: 065
     Dates: start: 20101007, end: 20110403
  6. PEGINTERFERON ALFA-2A [Suspect]
     Route: 065
  7. INTERFERON [Suspect]
     Indication: HEPATITIS C
     Route: 065
     Dates: start: 20100728, end: 20110330
  8. PEGINTERFERON ALFA-2A [Suspect]
     Route: 065
  9. COPEGUS [Suspect]
     Dosage: REDUCED DOSAGE
     Route: 065

REACTIONS (2)
  - HEPATIC ENZYME INCREASED [None]
  - HYPERBILIRUBINAEMIA [None]
